FAERS Safety Report 9200464 (Version 1)
Quarter: 2013Q1

REPORT INFORMATION
  Report Type: Other
  Country: GB (occurrence: GB)
  Receive Date: 20130329
  Receipt Date: 20130329
  Transmission Date: 20140127
  Serious: Yes (Other)
  Sender: FDA-Public Use
  Company Number: GB-WATSON-2013-05365

PATIENT
  Age: 52 Year
  Sex: Female

DRUGS (1)
  1. TRAMADOL HYDROCHLORIDE (UNKNOWN) [Suspect]
     Indication: PRODUCT USED FOR UNKNOWN INDICATION
     Dosage: UNK
     Route: 042
     Dates: start: 20130305, end: 20130305

REACTIONS (4)
  - Hot flush [Unknown]
  - Cold sweat [Unknown]
  - Dizziness [Unknown]
  - Tachypnoea [Unknown]
